FAERS Safety Report 6689731-0 (Version None)
Quarter: 2010Q2

REPORT INFORMATION
  Report Type: 
  Country: None (occurrence: None)
  Receive Date: 20100421
  Receipt Date: 20100409
  Transmission Date: 20101027
  Serious: Yes (Hospitalization, Other)
  Sender: FDA-Public Use
  Company Number: DE-BAYER-200814141GPV

PATIENT
  Age: 62 Year
  Sex: Male
  Weight: 75 kg

DRUGS (22)
  1. SORAFENIB [Suspect]
     Indication: NON-SMALL CELL LUNG CANCER
     Dosage: TOTAL DAILY DOSE: 800 MG  UNIT DOSE: 200 MG
     Route: 048
     Dates: start: 20080202
  2. GEMCITABINE HCL [Suspect]
     Indication: NON-SMALL CELL LUNG CANCER
     Route: 042
     Dates: start: 20080221, end: 20080221
  3. CISPLATIN [Suspect]
     Indication: NON-SMALL CELL LUNG CANCER
     Route: 042
     Dates: start: 20080221, end: 20080221
  4. METFORMIN HCL [Concomitant]
     Indication: DIABETES MELLITUS
     Route: 065
     Dates: start: 20080304
  5. METFORMIN HCL [Concomitant]
     Route: 065
     Dates: start: 20080222, end: 20080228
  6. METFORMIN HCL [Concomitant]
     Route: 065
     Dates: start: 20040101, end: 20080109
  7. METFORMIN HCL [Concomitant]
     Route: 065
     Dates: start: 20080111, end: 20080219
  8. OXAZEPAM [Concomitant]
     Indication: PROPHYLAXIS
     Route: 065
     Dates: start: 20071219, end: 20071219
  9. PANTOZOL [Concomitant]
     Indication: PROPHYLAXIS
     Route: 065
     Dates: start: 20071219
  10. LOPEDIUM [Concomitant]
     Indication: DIARRHOEA
     Route: 065
     Dates: start: 20071221, end: 20071227
  11. ZOFRAN [Concomitant]
     Indication: VOMITING
     Route: 065
     Dates: start: 20080113, end: 20080113
  12. VERGENTAN [Concomitant]
     Indication: VOMITING
     Route: 065
     Dates: start: 20080113, end: 20080113
  13. PASPERTIN [Concomitant]
     Indication: VOMITING
     Route: 065
     Dates: start: 20080130, end: 20080130
  14. ENOXAPARIN SODIUM [Concomitant]
     Indication: PROPHYLAXIS
     Route: 065
     Dates: start: 20080228, end: 20080301
  15. LOCOL [Concomitant]
     Indication: HYPERLIPIDAEMIA
     Route: 065
     Dates: start: 20050101, end: 20080114
  16. MCP RET. [Concomitant]
     Indication: PROPHYLAXIS
     Route: 065
     Dates: start: 20080111, end: 20080114
  17. VOMEX [Concomitant]
     Indication: PROPHYLAXIS
     Route: 065
     Dates: start: 20080111, end: 20080114
  18. VOMEX [Concomitant]
     Route: 065
     Dates: start: 20080221, end: 20080223
  19. FAKTU AKUT [Concomitant]
     Indication: ANAL FISSURE
     Route: 065
     Dates: start: 20080228
  20. KAMILLOSAN [Concomitant]
     Indication: ANAL FISSURE
     Dosage: SITZ BATH
     Route: 065
     Dates: start: 20080228
  21. BEPANTHEN [Concomitant]
     Indication: ANAL FISSURE
     Route: 065
     Dates: start: 20080228
  22. SODIUM CHLORIDE 0.9% [Concomitant]
     Indication: HYPOTONIA
     Route: 065
     Dates: start: 20080228, end: 20080303

REACTIONS (2)
  - CIRCULATORY COLLAPSE [None]
  - INFECTION [None]
